FAERS Safety Report 6045469-4 (Version None)
Quarter: 2009Q1

REPORT INFORMATION
  Report Type: 
  Country: None (occurrence: None)
  Receive Date: 20090121
  Receipt Date: 20090115
  Transmission Date: 20090719
  Serious: Yes (Death)
  Sender: FDA-Public Use
  Company Number: US-BRISTOL-MYERS SQUIBB COMPANY-14473029

PATIENT
  Age: 2 Decade
  Sex: Male

DRUGS (7)
  1. WARFARIN SODIUM [Suspect]
     Route: 065
  2. HYDROCODONE BITARTRATE [Suspect]
     Route: 065
  3. IBUPROFEN [Suspect]
     Route: 065
  4. OXYCODONE [Suspect]
     Route: 065
  5. CARISOPRODOL [Suspect]
     Route: 065
  6. PREGABALIN [Suspect]
     Route: 065
  7. DIPHENHYDRAMINE HCL [Suspect]
     Route: 065

REACTIONS (1)
  - DRUG TOXICITY [None]
